FAERS Safety Report 16979454 (Version 1)
Quarter: 2019Q4

REPORT INFORMATION
  Report Type: Spontaneous
  Country: US (occurrence: US)
  Receive Date: 20191031
  Receipt Date: 20191031
  Transmission Date: 20200122
  Serious: No
  Sender: FDA-Public Use
  Company Number: US-BAUSCH-BL-2019-055708

PATIENT
  Sex: Female

DRUGS (2)
  1. TRULANCE [Suspect]
     Active Substance: PLECANATIDE
     Dosage: SPLIT THE TABLET IN HALF AND TOOK THE FIRST HALF AND THEN LATER THE SECOND HALF
     Route: 048
     Dates: start: 20190926
  2. TRULANCE [Suspect]
     Active Substance: PLECANATIDE
     Indication: CONSTIPATION
     Dosage: START DATE: A COUPLE DAYS AGO, AS NEEDED
     Route: 048
     Dates: start: 20190924, end: 201909

REACTIONS (3)
  - Inappropriate schedule of product administration [Unknown]
  - Product prescribing error [Unknown]
  - Feeling abnormal [Not Recovered/Not Resolved]

NARRATIVE: CASE EVENT DATE: 20190926
